FAERS Safety Report 6280585-3 (Version None)
Quarter: 2009Q3

REPORT INFORMATION
  Report Type: 
  Country: None (occurrence: None)
  Receive Date: 20090724
  Receipt Date: 20080904
  Transmission Date: 20100115
  Serious: Yes (Other)
  Sender: FDA-Public Use
  Company Number: A0747390A

PATIENT
  Age: 49 Year
  Sex: Female
  Weight: 86.4 kg

DRUGS (4)
  1. AVANDIA [Suspect]
     Dosage: 8MG PER DAY
     Route: 065
     Dates: start: 19980101, end: 20070101
  2. REGULAR INSULIN [Concomitant]
     Dates: start: 19850101, end: 20000101
  3. NPH INSULIN [Concomitant]
     Dates: start: 19850101, end: 20000101
  4. LENTE INSULIN [Concomitant]
     Dates: start: 19850101, end: 20000101

REACTIONS (1)
  - CARDIAC FAILURE CONGESTIVE [None]
